FAERS Safety Report 23790321 (Version 1)
Quarter: 2024Q2

REPORT INFORMATION
  Report Type: Spontaneous
  Country: IT (occurrence: IT)
  Receive Date: 20240427
  Receipt Date: 20240427
  Transmission Date: 20240716
  Serious: Yes (Hospitalization)
  Sender: FDA-Public Use
  Company Number: None

PATIENT
  Age: 62 Year
  Sex: Female

DRUGS (2)
  1. SOTALOL [Suspect]
     Active Substance: SOTALOL
     Indication: Intentional self-injury
     Dosage: PRESCRIBED DOSAGE: 80 MG/DAY?DOSAGE TAKEN FOR SELF-HARMING PURPOSES: 80 TABLETS OF 80 MG (6400 MG)
     Route: 048
  2. COUMADIN [Suspect]
     Active Substance: WARFARIN SODIUM
     Indication: Intentional self-injury
     Dosage: PRESCRIBED DOSAGE: BASED ON INR;?DOSAGE TAKEN FOR SELF-HARMING PURPOSES: 60 TABLETS OF 5 MG (300 MG)
     Route: 048
     Dates: start: 19700101

REACTIONS (5)
  - Drug abuse [Recovering/Resolving]
  - Vomiting [Recovered/Resolved]
  - Anaemia [Not Recovered/Not Resolved]
  - Prothrombin level increased [Recovering/Resolving]
  - Hypokalaemia [Recovering/Resolving]

NARRATIVE: CASE EVENT DATE: 20240326
